FAERS Safety Report 9485362 (Version 2)
Quarter: 2013Q3

REPORT INFORMATION
  Report Type: Report from Study
  Country: FR (occurrence: FR)
  Receive Date: 20130828
  Receipt Date: 20130828
  Transmission Date: 20140515
  Serious: Yes (Death)
  Sender: FDA-Public Use
  Company Number: FR-ROCHE-605455

PATIENT
  Sex: 0

DRUGS (2)
  1. RITUXIMAB [Suspect]
     Indication: NON-HODGKIN^S LYMPHOMA
     Dosage: DOSE: 250MG/M2 1 WEEK APART
     Route: 042
  2. IBRITUMOMAB TIUXETAN\YTTRIUM Y-90 [Suspect]
     Indication: NON-HODGKIN^S LYMPHOMA
     Dosage: 14.8 MBQ/KG (0.4 MCI/KG), NOT EXCEEDING A TOTAL DOSE OF 1,184 MBQ (32 MCI).
     Route: 065

REACTIONS (1)
  - Disease progression [Fatal]
